FAERS Safety Report 6590697-2 (Version None)
Quarter: 2010Q1

REPORT INFORMATION
  Report Type: 
  Country: None (occurrence: None)
  Receive Date: 20100219
  Receipt Date: 20100215
  Transmission Date: 20100710
  Serious: Yes (Hospitalization)
  Sender: FDA-Public Use
  Company Number: D0066522A

PATIENT
  Sex: Male

DRUGS (8)
  1. DARAPRIM [Suspect]
     Indication: TOXOPLASMOSIS
     Dosage: 30MG PER DAY
     Route: 048
     Dates: start: 20071221
  2. SULFASALAZINE [Suspect]
     Indication: TOXOPLASMOSIS
     Dosage: 1500MG FOUR TIMES PER DAY
     Route: 048
     Dates: start: 20071221
  3. ZENTROPIL [Suspect]
     Indication: CONVULSION PROPHYLAXIS
     Dosage: 100MG THREE TIMES PER DAY
     Route: 048
     Dates: start: 20071213
  4. VOMEX A [Suspect]
     Dosage: 120MG TWICE PER DAY
     Route: 048
     Dates: start: 20080101, end: 20080118
  5. LEUCOVORIN CALCIUM [Suspect]
     Indication: TOXOPLASMOSIS
     Dosage: 15MG TWICE PER DAY
     Route: 048
     Dates: start: 20071220
  6. OMEP [Suspect]
     Indication: PROPHYLAXIS
     Dosage: 20MG PER DAY
     Route: 048
     Dates: start: 20071221
  7. CANDIO-HERMAL PLUS [Suspect]
     Indication: INTERTRIGO
     Route: 061
     Dates: start: 20080103, end: 20080118
  8. BALDRIAN [Suspect]
     Indication: SLEEP DISORDER
     Route: 048
     Dates: start: 20080116, end: 20080116

REACTIONS (10)
  - BLISTER [None]
  - DRUG ERUPTION [None]
  - GENITAL EROSION [None]
  - INTERTRIGO [None]
  - LIP EROSION [None]
  - ORAL MUCOSA EROSION [None]
  - PRURITUS [None]
  - RASH MACULAR [None]
  - SLEEP DISORDER [None]
  - STEVENS-JOHNSON SYNDROME [None]
